FAERS Safety Report 9720923 (Version 2)
Quarter: 2013Q4

REPORT INFORMATION
  Report Type: Spontaneous
  Country: CL (occurrence: CL)
  Receive Date: 20131129
  Receipt Date: 20131206
  Transmission Date: 20140711
  Serious: Yes (Hospitalization)
  Sender: FDA-Public Use
  Company Number: PHHY2013CL136373

PATIENT
  Age: 11 Year
  Sex: Female
  Weight: 40 kg

DRUGS (19)
  1. CIDIMUS [Suspect]
     Indication: RENAL TRANSPLANT
     Dosage: 5 MG, BID
     Route: 048
  2. CIDIMUS [Suspect]
     Dosage: 0.2 MG/KG, PER DAY
     Dates: start: 20130830
  3. CIDIMUS [Suspect]
     Dosage: 0.27 MG/KG, PER DAY
     Dates: start: 20130904
  4. CIDIMUS [Suspect]
     Dosage: 0.27 MG/KG, PER DAY
     Dates: start: 20130906
  5. CIDIMUS [Suspect]
     Dosage: 0.27 MG/KG, PER DAY
     Dates: start: 20130916
  6. CIDIMUS [Suspect]
     Dosage: 0.2 MG/KG, PER DAY
     Dates: start: 20130926
  7. CIDIMUS [Suspect]
     Dosage: 0.2 MG/KG, PER DAY
     Dates: start: 20131001
  8. CIDIMUS [Suspect]
     Dosage: 0.17 MG/KG, PER DAY
     Dates: start: 20131008
  9. CIDIMUS [Suspect]
     Dosage: 0.15 MG/KG, PER DAY
     Dates: start: 20131017
  10. CIDIMUS [Suspect]
     Dosage: 0.12 MG/KG, PER DAY
     Dates: start: 20131022
  11. CIDIMUS [Suspect]
     Dosage: 0.1 MG/KG, PER DAY
     Dates: start: 20131024
  12. MYCOPHENOLATE MOFETIL [Concomitant]
  13. PREDNISONE [Concomitant]
     Dosage: 15 MG/KG, PER DAY
     Dates: start: 20130830
  14. PREDNISONE [Concomitant]
     Dosage: 0.5 MG/KG, PER DAY
     Dates: start: 20130904
  15. PREDNISONE [Concomitant]
     Dosage: 0.25 MG/KG, PER DAY
     Dates: start: 20130906
  16. PREDNISONE [Concomitant]
     Dosage: 0.125 MG/KG, PER DAY
     Dates: start: 20130916
  17. BASILIXIMAB [Concomitant]
  18. RAPAMYCIN [Concomitant]
  19. INSULIN [Concomitant]

REACTIONS (12)
  - Diabetic ketoacidosis [Recovering/Resolving]
  - General physical health deterioration [Recovering/Resolving]
  - Kidney transplant rejection [Recovering/Resolving]
  - Diabetes mellitus [Recovering/Resolving]
  - Polydipsia [Recovering/Resolving]
  - Polyuria [Recovering/Resolving]
  - Renal impairment [Recovering/Resolving]
  - Blood creatinine increased [Recovering/Resolving]
  - Dyspnoea [Recovering/Resolving]
  - Asthenia [Recovering/Resolving]
  - Drug level increased [Recovering/Resolving]
  - Decreased appetite [Recovering/Resolving]
